FAERS Safety Report 22975571 (Version 2)
Quarter: 2024Q1

REPORT INFORMATION
  Report Type: Other
  Country: CA (occurrence: CA)
  Receive Date: 20230925
  Receipt Date: 20240125
  Transmission Date: 20240409
  Serious: Yes (Other)
  Sender: FDA-Public Use
  Company Number: CA-APOTEX-2023AP013764

PATIENT
  Age: 31 Year
  Sex: Female

DRUGS (4)
  1. ACETAMINOPHEN [Suspect]
     Active Substance: ACETAMINOPHEN
     Indication: Drug abuse
     Dosage: UNK
     Route: 064
  2. METHADONE [Suspect]
     Active Substance: METHADONE HYDROCHLORIDE
     Indication: Drug abuse
     Dosage: UNK
     Route: 064
  3. DIMENHYDRINATE [Suspect]
     Active Substance: DIMENHYDRINATE
     Indication: Drug abuse
     Dosage: UNK
     Route: 064
  4. CODEINE [Suspect]
     Active Substance: CODEINE
     Indication: Drug abuse
     Dosage: UNK
     Route: 064

REACTIONS (3)
  - Drug abuse [Recovering/Resolving]
  - Live birth [Recovering/Resolving]
  - Maternal exposure during pregnancy [Recovering/Resolving]
